FAERS Safety Report 17473516 (Version 1)
Quarter: 2020Q1

REPORT INFORMATION
  Report Type: Report from Study
  Country: GB (occurrence: GB)
  Receive Date: 20200228
  Receipt Date: 20200228
  Transmission Date: 20200409
  Serious: Yes (Hospitalization)
  Sender: FDA-Public Use
  Company Number: GB-JNJFOC-20190636837

PATIENT
  Age: 70 Year
  Sex: Female
  Weight: 78.8 kg

DRUGS (15)
  1. SIMVASTATIN. [Concomitant]
     Active Substance: SIMVASTATIN
     Dates: start: 20131112
  2. TELMISARTAN. [Concomitant]
     Active Substance: TELMISARTAN
     Dates: start: 20131112
  3. EZETIMIBE. [Concomitant]
     Active Substance: EZETIMIBE
     Dates: start: 20131112
  4. LINAGLIPTIN [Concomitant]
     Active Substance: LINAGLIPTIN
     Dates: start: 20170220
  5. ACITRETIN. [Concomitant]
     Active Substance: ACITRETIN
     Dates: start: 20170616
  6. STELARA [Suspect]
     Active Substance: USTEKINUMAB
     Indication: PSORIASIS
     Route: 058
     Dates: start: 20160710
  7. BISOPROLOL [Concomitant]
     Active Substance: BISOPROLOL
     Dates: start: 20120101
  8. METFORMIN [Concomitant]
     Active Substance: METFORMIN HYDROCHLORIDE
     Dates: start: 20060101
  9. TELMISARTAN. [Concomitant]
     Active Substance: TELMISARTAN
     Dates: start: 20170204
  10. FERROUS FUMARATE [Concomitant]
     Active Substance: FERROUS FUMARATE
     Dates: start: 20170220
  11. INSULIN [Concomitant]
     Active Substance: INSULIN NOS
     Dates: start: 20060101
  12. TELMISARTAN. [Concomitant]
     Active Substance: TELMISARTAN
     Dates: start: 20060101
  13. PANTOPRAZOLE [Concomitant]
     Active Substance: PANTOPRAZOLE
     Dates: start: 20140101
  14. ASPRIN [Concomitant]
     Active Substance: ASPIRIN
     Dates: start: 20060101
  15. APIXABAN [Concomitant]
     Active Substance: APIXABAN
     Dates: start: 20170220

REACTIONS (4)
  - Acute kidney injury [Recovered/Resolved]
  - Iron deficiency anaemia [Recovered/Resolved]
  - Vitamin B12 deficiency [Recovered/Resolved]
  - Urinary tract infection [Recovered/Resolved]

NARRATIVE: CASE EVENT DATE: 20181021
